FAERS Safety Report 10104383 (Version 2)
Quarter: 2014Q2

REPORT INFORMATION
  Report Type: Other
  Country: US (occurrence: US)
  Receive Date: 20140424
  Receipt Date: 20140624
  Transmission Date: 20141212
  Serious: Yes (Hospitalization, Other)
  Sender: FDA-Public Use
  Company Number: US-GSKPPD-2014GSK002497

PATIENT
  Age: 70 Year
  Sex: Female

DRUGS (3)
  1. AVANDIA [Suspect]
     Indication: DIABETES MELLITUS
     Route: 048
     Dates: start: 2004, end: 2006
  2. AVANDAMET [Suspect]
     Indication: DIABETES MELLITUS
     Dosage: 2-500MG
     Route: 048
     Dates: start: 20040927, end: 2005
  3. PLAVIX [Concomitant]
     Dosage: TREATMENT MEDICATION
     Dates: start: 200309

REACTIONS (1)
  - Cerebrovascular accident [Recovered/Resolved]
